FAERS Safety Report 13075266 (Version 2)
Quarter: 2017Q1

REPORT INFORMATION
  Report Type: Spontaneous
  Country: IQ (occurrence: IQ)
  Receive Date: 20161230
  Receipt Date: 20170131
  Transmission Date: 20170428
  Serious: Yes (Other)
  Sender: FDA-Public Use
  Company Number: IQ-INCYTE CORPORATION-2016IN008322

PATIENT
  Age: 64 Year
  Sex: Female

DRUGS (2)
  1. JAKAVI [Suspect]
     Active Substance: RUXOLITINIB
     Dosage: 15 MG, BID
     Route: 065
  2. JAKAVI [Suspect]
     Active Substance: RUXOLITINIB
     Indication: MYELOFIBROSIS
     Dosage: 20 MG, BID
     Route: 065

REACTIONS (10)
  - Diabetes mellitus [Unknown]
  - Lymphocytosis [Unknown]
  - Metastases to bone marrow [Unknown]
  - Splenomegaly [Unknown]
  - Platelet count increased [Unknown]
  - Bicytopenia [Unknown]
  - Poikilocytosis [Unknown]
  - Platelet count decreased [Unknown]
  - Erythroblastosis [Unknown]
  - Hypertension [Unknown]

NARRATIVE: CASE EVENT DATE: 20160320
